FAERS Safety Report 19355446 (Version 1)
Quarter: 2021Q2

REPORT INFORMATION
  Report Type: Spontaneous
  Country: DK (occurrence: DK)
  Receive Date: 20210601
  Receipt Date: 20210601
  Transmission Date: 20210717
  Serious: Yes (Death, Hospitalization)
  Sender: FDA-Public Use
  Company Number: DK-ROCHE-2836816

PATIENT
  Age: 65 Year
  Sex: Male
  Weight: 102 kg

DRUGS (1)
  1. RITUXIMAB. [Suspect]
     Active Substance: RITUXIMAB
     Indication: VASCULITIS
     Dosage: DOSAGE: 1000 MG WEEK 0, 2 AND 6?12 MONTHS THEREAFTER, STRENGTH: 500 MG
     Route: 041
     Dates: start: 20210322

REACTIONS (2)
  - Pneumonitis [Fatal]
  - Pulmonary fibrosis [Fatal]
